FAERS Safety Report 24732497 (Version 1)
Quarter: 2024Q4

REPORT INFORMATION
  Report Type: Spontaneous
  Country: GB (occurrence: GB)
  Receive Date: 20241213
  Receipt Date: 20241213
  Transmission Date: 20250115
  Serious: Yes (Other)
  Sender: EISAI
  Company Number: None

PATIENT
  Age: 63 Year
  Sex: Male
  Weight: 82 kg

DRUGS (2)
  1. DONEPEZIL [Suspect]
     Active Substance: DONEPEZIL
     Indication: Dementia
     Dosage: FREQUENCY UNKNOWN
     Route: 048
     Dates: start: 20241016, end: 20241122
  2. DONEPEZIL [Suspect]
     Active Substance: DONEPEZIL
     Dosage: PATIENT COMMENCED ON 5MG, AND THIS WAS INCREASED TO 10MG AFTER 4 WEEKS.?FREQUENCY UNKNOWN.
     Route: 048
     Dates: start: 2024, end: 20241015

REACTIONS (2)
  - Confusional state [Recovered/Resolved]
  - Restlessness [Recovered/Resolved]

NARRATIVE: CASE EVENT DATE: 20241110
